FAERS Safety Report 23567217 (Version 1)
Quarter: 2024Q1

REPORT INFORMATION
  Report Type: Spontaneous
  Country: CN (occurrence: CN)
  Receive Date: 20240226
  Receipt Date: 20240226
  Transmission Date: 20240410
  Serious: Yes (Other)
  Sender: FDA-Public Use
  Company Number: CN-PFIZER INC-PV202400025481

PATIENT
  Age: 48 Year
  Sex: Female

DRUGS (3)
  1. PACLITAXEL [Suspect]
     Active Substance: PACLITAXEL
     Indication: Endometrial cancer
     Dosage: 30 MG, 1X/DAY
     Route: 041
     Dates: start: 20240111, end: 20240111
  2. PACLITAXEL [Suspect]
     Active Substance: PACLITAXEL
     Dosage: 210 MG, 1X/DAY
     Route: 041
     Dates: start: 20240111, end: 20240111
  3. CARBOPLATIN [Suspect]
     Active Substance: CARBOPLATIN
     Indication: Endometrial cancer
     Dosage: 600 MG, 1X/DAY
     Route: 041
     Dates: start: 20240111, end: 20240111

REACTIONS (2)
  - Drug-induced liver injury [Recovering/Resolving]
  - Off label use [Unknown]

NARRATIVE: CASE EVENT DATE: 20240131
